FAERS Safety Report 4411216-2 (Version None)
Quarter: 2004Q2

REPORT INFORMATION
  Report Type: 
  Country: None (occurrence: None)
  Receive Date: 20040630
  Receipt Date: 20040517
  Transmission Date: 20050107
  Serious: No
  Sender: FDA-Public Use
  Company Number: 04P-163-0261032-00

PATIENT
  Age: 66 Year
  Sex: Female
  Weight: 62.5964 kg

DRUGS (6)
  1. HUMIRA [Suspect]
     Indication: RHEUMATOID ARTHRITIS
     Dosage: SEE IMAGE
     Route: 058
     Dates: start: 20030604
  2. HUMIRA [Suspect]
     Indication: RHEUMATOID ARTHRITIS
     Dosage: SEE IMAGE
     Route: 058
     Dates: start: 20040201
  3. ESOMEPRAZOLE [Concomitant]
  4. CELECOXIB [Concomitant]
  5. PREDNISONE [Concomitant]
  6. MULTIVITAMIN [Concomitant]

REACTIONS (2)
  - PHOTOPSIA [None]
  - VISUAL DISTURBANCE [None]
